FAERS Safety Report 9891291 (Version 4)
Quarter: 2014Q1

REPORT INFORMATION
  Report Type: Spontaneous
  Country: US (occurrence: US)
  Receive Date: 20140212
  Receipt Date: 20140312
  Transmission Date: 20141002
  Serious: No
  Sender: FDA-Public Use
  Company Number: US-ROXANE LABORATORIES, INC.-2014-RO-00161RO

PATIENT
  Sex: Female

DRUGS (2)
  1. IRBESARTAN HCT [Suspect]
     Indication: HYPERTENSION
     Route: 048
     Dates: start: 201401
  2. DIGOXIN [Concomitant]
     Route: 065

REACTIONS (4)
  - Dysgeusia [Not Recovered/Not Resolved]
  - Insomnia [Not Recovered/Not Resolved]
  - Product quality issue [Unknown]
  - Headache [Unknown]
